FAERS Safety Report 7730293-4 (Version None)
Quarter: 2011Q3

REPORT INFORMATION
  Report Type: 
  Country: None (occurrence: None)
  Receive Date: 20110906
  Receipt Date: 20110823
  Transmission Date: 20111222
  Serious: Yes (Other)
  Sender: FDA-Public Use
  Company Number: US-ELI_LILLY_AND_COMPANY-US201103007704

PATIENT
  Sex: Female

DRUGS (14)
  1. REMICAIDE [Concomitant]
  2. KLONOPIN [Concomitant]
  3. PREDNISONE [Concomitant]
     Indication: LUPUS-LIKE SYNDROME
  4. MORPHINE [Concomitant]
  5. FOLIC ACID [Concomitant]
  6. PLAQUENIL [Concomitant]
  7. VITAMIN D [Concomitant]
     Indication: SUPPLEMENTATION THERAPY
  8. METHOTREXATE [Concomitant]
  9. FORTEO [Suspect]
     Indication: OSTEOPOROSIS
     Dosage: 20 UG, QD
     Route: 065
     Dates: start: 20101201
  10. LEXAPRO [Concomitant]
  11. CALCIUM CARBONATE [Concomitant]
     Indication: SUPPLEMENTATION THERAPY
  12. FORTEO [Suspect]
     Dosage: 20 UG, QD
  13. FORTEO [Suspect]
     Dosage: 20 UG, QD
  14. NORCO [Concomitant]

REACTIONS (5)
  - OSTEONECROSIS [None]
  - BONE PAIN [None]
  - BONE DISORDER [None]
  - FIBULA FRACTURE [None]
  - PAIN IN EXTREMITY [None]
